FAERS Safety Report 24572516 (Version 1)
Quarter: 2024Q4

REPORT INFORMATION
  Report Type: Spontaneous
  Country: GB (occurrence: GB)
  Receive Date: 20241101
  Receipt Date: 20241101
  Transmission Date: 20250115
  Serious: Yes (Other)
  Sender: TORRENT PHARMA INC.
  Company Number: None

PATIENT
  Age: 57 Year
  Sex: Male
  Weight: 87 kg

DRUGS (2)
  1. MONTELUKAST [Suspect]
     Active Substance: MONTELUKAST
     Indication: Product used for unknown indication
     Dosage: ONE TO BE TAKEN AT NIGHT
     Route: 065
     Dates: end: 20241008
  2. Trimbow 172mcg/dose / 5mcg/dose / 9mcg/dose inhaler [Concomitant]
     Indication: Product used for unknown indication
     Dosage: TWO PUFFS TO BE INHALED TWICE A DAY
     Route: 055
     Dates: start: 20241008

REACTIONS (6)
  - Anxiety [Unknown]
  - Anger [Unknown]
  - Depression [Unknown]
  - Social avoidant behaviour [Unknown]
  - Abnormal behaviour [Unknown]
  - Physical assault [Unknown]
